FAERS Safety Report 7701883-X (Version None)
Quarter: 2011Q3

REPORT INFORMATION
  Report Type: 
  Country: None (occurrence: None)
  Receive Date: 20110822
  Receipt Date: 20110818
  Transmission Date: 20111222
  Serious: Yes (Other)
  Sender: FDA-Public Use
  Company Number: ES-PFIZER INC-2011172732

PATIENT
  Age: 51 Year
  Sex: Female

DRUGS (2)
  1. LYRICA [Suspect]
     Indication: NEURALGIA
     Dosage: 75 MG, 2X/DAY
     Dates: start: 20110614
  2. ALPRAZOLAM [Concomitant]
     Dosage: UNK

REACTIONS (6)
  - SUICIDAL IDEATION [None]
  - ANXIETY [None]
  - ASPHYXIA [None]
  - PANIC ATTACK [None]
  - LUNG DISORDER [None]
  - AGITATION [None]
